FAERS Safety Report 24174104 (Version 2)
Quarter: 2024Q3

REPORT INFORMATION
  Report Type: Report from Study
  Country: CA (occurrence: CA)
  Receive Date: 20240805
  Receipt Date: 20240902
  Transmission Date: 20241016
  Serious: Yes (Hospitalization, Other)
  Sender: JOHNSON AND JOHNSON
  Company Number: CA-JNJFOC-20240767181

PATIENT
  Age: 70 Year
  Sex: Male

DRUGS (13)
  1. REMICADE [Suspect]
     Active Substance: INFLIXIMAB
     Indication: Crohn^s disease
     Dosage: THERAPY START DATE ALSO REPORTED AS 10-NOV-2014
     Route: 041
     Dates: start: 20141120
  2. PREDNISONE [Concomitant]
     Active Substance: PREDNISONE
  3. TEMAZEPAM [Concomitant]
     Active Substance: TEMAZEPAM
  4. PREGABALIN [Concomitant]
     Active Substance: PREGABALIN
  5. DILTIAZEM [Concomitant]
     Active Substance: DILTIAZEM
  6. QUININE [Concomitant]
     Active Substance: QUININE
  7. BUPRENORPHINE [Concomitant]
     Active Substance: BUPRENORPHINE
  8. PERCOCET [Concomitant]
     Active Substance: ACETAMINOPHEN\OXYCODONE HYDROCHLORIDE
  9. ESOMEPRAZOLE [Concomitant]
     Active Substance: ESOMEPRAZOLE
  10. AMITRIPTYLINE [Concomitant]
     Active Substance: AMITRIPTYLINE
  11. SERTRALINE [Concomitant]
     Active Substance: SERTRALINE HYDROCHLORIDE
  12. ROSUVASTATIN [Concomitant]
     Active Substance: ROSUVASTATIN\ROSUVASTATIN CALCIUM
  13. ISOSORBIDE MONONITRATE [Concomitant]
     Active Substance: ISOSORBIDE MONONITRATE

REACTIONS (2)
  - Crohn^s disease [Not Recovered/Not Resolved]
  - Intestinal resection [Unknown]

NARRATIVE: CASE EVENT DATE: 20240627
